FAERS Safety Report 4372778-7 (Version None)
Quarter: 2004Q2

REPORT INFORMATION
  Report Type: 
  Country: None (occurrence: None)
  Receive Date: 20040602
  Receipt Date: 20040429
  Transmission Date: 20050107
  Serious: No
  Sender: FDA-Public Use
  Company Number: 200417762BWH

PATIENT
  Age: 69 Year
  Sex: Male
  Weight: 108.8633 kg

DRUGS (7)
  1. LEVITRA [Suspect]
     Indication: ERECTILE DYSFUNCTION
     Dosage: 10 MG, PRN, ORAL
     Route: 048
     Dates: start: 20040428
  2. LITHIUM CARBONATE [Concomitant]
  3. SEROQUEL [Concomitant]
  4. LAMICTAL [Concomitant]
  5. IMURAN [Concomitant]
  6. TEMAZEPAM [Concomitant]
  7. VIAGRA [Concomitant]

REACTIONS (3)
  - ERECTILE DYSFUNCTION [None]
  - FEELING HOT [None]
  - INSOMNIA [None]
